FAERS Safety Report 22144073 (Version 1)
Quarter: 2023Q1

REPORT INFORMATION
  Report Type: Report from Study
  Country: CO (occurrence: CO)
  Receive Date: 20230327
  Receipt Date: 20230327
  Transmission Date: 20230418
  Serious: Yes (Other)
  Sender: FDA-Public Use
  Company Number: CO-ABBVIE-4705122

PATIENT
  Sex: Female
  Weight: 90 kg

DRUGS (6)
  1. SKYRIZI [Suspect]
     Active Substance: RISANKIZUMAB-RZAA
     Indication: Psoriasis
     Dosage: LAST ADMIN DATE 2022
     Route: 058
     Dates: start: 20221105
  2. SKYRIZI [Suspect]
     Active Substance: RISANKIZUMAB-RZAA
     Dosage: FORM STRENGTH: 75 MG
     Route: 058
     Dates: start: 20220708
  3. ATORVASTATIN [Concomitant]
     Active Substance: ATORVASTATIN
     Indication: Vascular disorder prophylaxis
     Dosage: 20 MILLIGRAM
     Route: 048
  4. LOSARTAN [Concomitant]
     Active Substance: LOSARTAN
     Indication: Hypertension
     Dosage: 50 MILLIGRAM FREQUENCY TEXT: IN THE MORNING
     Route: 048
  5. LOSARTAN [Concomitant]
     Active Substance: LOSARTAN
     Indication: Hypertension
     Dosage: 100 MILLIGRAM?FREQUENCY TEXT: NIGHT
     Route: 048
  6. METOPROLOL [Concomitant]
     Active Substance: METOPROLOL
     Indication: Hypertension
     Route: 048

REACTIONS (7)
  - Depression suicidal [Not Recovered/Not Resolved]
  - Pollakiuria [Unknown]
  - Abnormal behaviour [Not Recovered/Not Resolved]
  - Boredom [Not Recovered/Not Resolved]
  - Weight increased [Not Recovered/Not Resolved]
  - Suicidal ideation [Not Recovered/Not Resolved]
  - Memory impairment [Not Recovered/Not Resolved]
